FAERS Safety Report 7115435-6 (Version None)
Quarter: 2010Q4

REPORT INFORMATION
  Report Type: 
  Country: None (occurrence: None)
  Receive Date: 20101122
  Receipt Date: 20101111
  Transmission Date: 20110411
  Serious: Yes (Other)
  Sender: FDA-Public Use
  Company Number: PHFR2010GB04575

PATIENT
  Sex: Female

DRUGS (3)
  1. CLOZARIL [Suspect]
     Indication: SCHIZOPHRENIA
     Dosage: UNK
     Route: 048
     Dates: start: 20030527
  2. CLOZARIL [Suspect]
     Dosage: UNK
     Route: 048
  3. EPILIM [Concomitant]
     Indication: CONVULSION
     Dosage: 400MG DAILY
     Route: 048
     Dates: start: 20101013

REACTIONS (7)
  - AGITATION [None]
  - CONVULSION [None]
  - NEUROLEPTIC MALIGNANT SYNDROME [None]
  - PYREXIA [None]
  - URINARY TRACT INFECTION [None]
  - URINE ABNORMALITY [None]
  - VOMITING [None]
